FAERS Safety Report 21675327 (Version 1)
Quarter: 2022Q4

REPORT INFORMATION
  Report Type: Spontaneous
  Country: US (occurrence: None)
  Receive Date: 20221202
  Receipt Date: 20221202
  Transmission Date: 20230113
  Serious: Yes (unspecified)
  Sender: FDA-Public Use
  Company Number: None

PATIENT
  Age: 74 Year
  Sex: Female

DRUGS (1)
  1. BEVACIZUMAB-AWWB [Suspect]
     Active Substance: BEVACIZUMAB-AWWB

REACTIONS (4)
  - Blood pressure increased [None]
  - Chest discomfort [None]
  - Headache [None]
  - Feeling jittery [None]

NARRATIVE: CASE EVENT DATE: 20221013
